FAERS Safety Report 7723819-8 (Version None)
Quarter: 2011Q3

REPORT INFORMATION
  Report Type: 
  Country: None (occurrence: None)
  Receive Date: 20110826
  Receipt Date: 20110812
  Transmission Date: 20111222
  Serious: Yes (Death)
  Sender: FDA-Public Use
  Company Number: DSU-2011-05996

PATIENT
  Age: 89 Year
  Sex: Female

DRUGS (1)
  1. BENICAR [Suspect]
     Indication: HYPERTENSION
     Dosage: , PER ORAL
     Route: 048

REACTIONS (1)
  - CERVIX CANCER METASTATIC [None]
